FAERS Safety Report 25802367 (Version 1)
Quarter: 2025Q3

REPORT INFORMATION
  Report Type: Spontaneous
  Country: EU (occurrence: EU)
  Receive Date: 20250915
  Receipt Date: 20250915
  Transmission Date: 20251020
  Serious: Yes (Other)
  Sender: INSUD PHARMA
  Company Number: None

PATIENT
  Age: 38 Year
  Sex: Female

DRUGS (1)
  1. DROSPIRENONE [Suspect]
     Active Substance: DROSPIRENONE
     Indication: Endometriosis
     Route: 048
     Dates: start: 2022, end: 202504

REACTIONS (18)
  - Off label use [Recovering/Resolving]
  - Hyperhidrosis [Recovering/Resolving]
  - Headache [Recovering/Resolving]
  - Electric shock sensation [Recovering/Resolving]
  - Angular cheilitis [Recovering/Resolving]
  - Skin exfoliation [Recovering/Resolving]
  - Dry skin [Recovering/Resolving]
  - Arrhythmia [Recovering/Resolving]
  - Heart rate increased [Recovering/Resolving]
  - Fatigue [Recovering/Resolving]
  - Dry mouth [Recovering/Resolving]
  - Vulvovaginal dryness [Recovering/Resolving]
  - Pain [Recovering/Resolving]
  - Bacterial vaginosis [Recovering/Resolving]
  - Eyelid myokymia [Recovering/Resolving]
  - Depression [Recovering/Resolving]
  - Memory impairment [Recovering/Resolving]
  - Prescribed overdose [Recovering/Resolving]

NARRATIVE: CASE EVENT DATE: 20220101
